FAERS Safety Report 11643419 (Version 1)
Quarter: 2015Q4

REPORT INFORMATION
  Report Type: Report from Study
  Country: US (occurrence: US)
  Receive Date: 20151020
  Receipt Date: 20151020
  Transmission Date: 20160304
  Serious: No
  Sender: FDA-Public Use
  Company Number: PHEH2015US020818

PATIENT
  Sex: Male

DRUGS (1)
  1. VOTRIENT [Suspect]
     Active Substance: PAZOPANIB HYDROCHLORIDE
     Indication: PULMONARY SARCOIDOSIS
     Dosage: 400 MG, QD
     Route: 065
     Dates: start: 201507

REACTIONS (2)
  - Vomiting [Unknown]
  - Nausea [Unknown]
